FAERS Safety Report 9513229 (Version 2)
Quarter: 2017Q2

REPORT INFORMATION
  Report Type: Spontaneous
  Country: US (occurrence: US)
  Receive Date: 20130910
  Receipt Date: 20170410
  Transmission Date: 20170830
  Serious: Yes (Other)
  Sender: FDA-Public Use
  Company Number: US-009507513-1308USA014009

PATIENT
  Age: 41 Year
  Sex: Female
  Weight: 80.73 kg

DRUGS (1)
  1. NUVARING [Suspect]
     Active Substance: ETHINYL ESTRADIOL\ETONOGESTREL
     Indication: MENSTRUAL CYCLE MANAGEMENT
     Dosage: 1 VAGINAL RING FOR THREE WEEKS IN AND ONE WEEK OUT
     Route: 067
     Dates: start: 2001

REACTIONS (6)
  - Product quality issue [Unknown]
  - Device breakage [Unknown]
  - Vulvovaginal discomfort [Recovered/Resolved]
  - Vulvovaginal injury [Recovered/Resolved]
  - Vulvovaginal discomfort [Recovered/Resolved]
  - Vulvovaginal injury [Recovered/Resolved]

NARRATIVE: CASE EVENT DATE: 20130823
